FAERS Safety Report 17450241 (Version 1)
Quarter: 2020Q1

REPORT INFORMATION
  Report Type: Spontaneous
  Country: US (occurrence: US)
  Receive Date: 20200218
  Receipt Date: 20200218
  Transmission Date: 20200409
  Serious: No
  Sender: FDA-Public Use
  Company Number: None

PATIENT
  Age: 54 Year
  Sex: Female
  Weight: 153.5 kg

DRUGS (15)
  1. ACETAMINOPHEN 650 MG PO Q4H PRN [Concomitant]
  2. FUROSEMIADE 40 MG PO QD [Concomitant]
  3. LOVENOX 40 MG/0.4 ML SUBQ QHS [Concomitant]
  4. MELATONIN 3 MG PO PRN [Concomitant]
  5. BELLADONNA ALKALOIDS-OPIUM 16.2-30 MG PO Q4HPRN [Concomitant]
  6. VENTOLIN INHALE Q6H PRN [Concomitant]
  7. CLONAZEPAM 2 MG PO QHS [Concomitant]
  8. FLOVENT HFA 110 MCG PO BID [Concomitant]
  9. TOPIRAMATE 25 MG PO QHS [Concomitant]
  10. CEFTRIAXONE. [Suspect]
     Active Substance: CEFTRIAXONE
     Indication: ABDOMINAL ABSCESS
     Route: 040
     Dates: start: 20200113, end: 20200128
  11. DULOXETINE 90 MG PO QHS [Concomitant]
  12. LORATADINE 10 MG PO PRN [Concomitant]
  13. TRAZODONE 50 MG PO QHS [Concomitant]
  14. ERGOCALCIFEROL 10,000 UNITS PO QD [Concomitant]
  15. MORPHINE 7.5 MG PO Q6H PRN [Concomitant]

REACTIONS (2)
  - Neutropenia [None]
  - Postoperative wound infection [None]

NARRATIVE: CASE EVENT DATE: 20200128
